FAERS Safety Report 11794420 (Version 2)
Quarter: 2015Q4

REPORT INFORMATION
  Report Type: Spontaneous
  Country: US (occurrence: US)
  Receive Date: 20151202
  Receipt Date: 20151204
  Transmission Date: 20160305
  Serious: Yes (Hospitalization, Other)
  Sender: FDA-Public Use
  Company Number: US-PFIZER INC-2015404341

PATIENT
  Age: 60 Year
  Sex: Female
  Weight: 65.76 kg

DRUGS (2)
  1. LYRICA [Suspect]
     Active Substance: PREGABALIN
     Dosage: 50 MG, 2X/DAY(MORNING AND AT NIGHT)
     Dates: end: 201508
  2. LYRICA [Suspect]
     Active Substance: PREGABALIN
     Dosage: 50 MG, 1X/DAY

REACTIONS (9)
  - Localised infection [Unknown]
  - Limb injury [Unknown]
  - Limb discomfort [Unknown]
  - Pain in extremity [Unknown]
  - Intentional product use issue [Unknown]
  - Soft tissue injury [Unknown]
  - Diabetic foot [Unknown]
  - Gait disturbance [Unknown]
  - Bedridden [Unknown]

NARRATIVE: CASE EVENT DATE: 201507
